FAERS Safety Report 7379945-9 (Version None)
Quarter: 2011Q1

REPORT INFORMATION
  Report Type: 
  Country: None (occurrence: None)
  Receive Date: 20110329
  Receipt Date: 20110315
  Transmission Date: 20110831
  Serious: Yes (Hospitalization)
  Sender: FDA-Public Use
  Company Number: PHHO2011DE03819

PATIENT
  Sex: Female
  Weight: 72 kg

DRUGS (6)
  1. ZOLEDRONIC ACID [Suspect]
     Indication: BREAST CANCER
     Dosage: 4 MG, UNK
     Route: 042
     Dates: start: 20080919
  2. IBUPROFEN TABLETS [Concomitant]
  3. TAMOXIFEN CITRATE [Concomitant]
  4. CALCIUM [Concomitant]
  5. VITAMIN D [Concomitant]
  6. CLINDAMYCIN [Concomitant]

REACTIONS (3)
  - DENTAL CARIES [None]
  - DENTAL OPERATION [None]
  - TOOTH EXTRACTION [None]
